FAERS Safety Report 6488088-8 (Version None)
Quarter: 2009Q4

REPORT INFORMATION
  Report Type: 
  Country: None (occurrence: None)
  Receive Date: 20091123
  Receipt Date: 20091015
  Transmission Date: 20100525
  Serious: No
  Sender: FDA-Public Use
  Company Number: 8053365

PATIENT
  Age: 26 Year
  Sex: Male
  Weight: 77.2 kg

DRUGS (5)
  1. CIMZIA [Suspect]
     Indication: CROHN'S DISEASE
     Dosage: 400 MG SC
     Route: 058
     Dates: start: 20090901
  2. FLU VACCINE (UNSPECIFIED) [Suspect]
     Dates: start: 20091015, end: 20091015
  3. IMURAN [Concomitant]
  4. IRON [Concomitant]
  5. COUMADIN [Concomitant]

REACTIONS (3)
  - BACK PAIN [None]
  - PAIN [None]
  - PALPITATIONS [None]
